FAERS Safety Report 4639182-5 (Version None)
Quarter: 2005Q2

REPORT INFORMATION
  Report Type: 
  Country: None (occurrence: None)
  Receive Date: 20050419
  Receipt Date: 20050407
  Transmission Date: 20051028
  Serious: Yes (Life-Threatening, Hospitalization)
  Sender: FDA-Public Use
  Company Number: FR-BRISTOL-MYERS SQUIBB COMPANY-12925376

PATIENT
  Age: 81 Year
  Sex: Female

DRUGS (6)
  1. CAPTEA [Suspect]
     Indication: ESSENTIAL HYPERTENSION
     Route: 048
     Dates: end: 20050127
  2. LASIX [Interacting]
     Indication: ESSENTIAL HYPERTENSION
     Route: 048
     Dates: end: 20050127
  3. TENORDATE [Concomitant]
     Indication: ESSENTIAL HYPERTENSION
     Dosage: DURATION OF TREATMENT: WELL OVER ONE YEAR
     Route: 048
     Dates: end: 20050127
  4. HYPERIUM [Concomitant]
     Indication: ESSENTIAL HYPERTENSION
     Dosage: DURATION OF TREATMENT: WELL OVER ONE YEAR
     Route: 048
     Dates: end: 20050127
  5. BAYPRESS [Concomitant]
     Indication: ESSENTIAL HYPERTENSION
     Dosage: DURATION OF TREATMENT: WELL OVER ONE YEAR
     Route: 048
     Dates: end: 20050127
  6. AMLOR [Concomitant]
     Indication: ESSENTIAL HYPERTENSION
     Dosage: DURATION OF TREATMENT: WELL OVER ONE YEAR
     Route: 048
     Dates: end: 20050127

REACTIONS (4)
  - ANURIA [None]
  - DRUG INTERACTION [None]
  - HYPERKALAEMIA [None]
  - RENAL FAILURE ACUTE [None]
